FAERS Safety Report 12648766 (Version 3)
Quarter: 2016Q4

REPORT INFORMATION
  Report Type: Spontaneous
  Country: US (occurrence: US)
  Receive Date: 20160812
  Receipt Date: 20161021
  Transmission Date: 20170207
  Serious: No
  Sender: FDA-Public Use
  Company Number: US-PFIZER INC-2016380451

PATIENT
  Age: 76 Year
  Sex: Female

DRUGS (6)
  1. XELJANZ [Suspect]
     Active Substance: TOFACITINIB CITRATE
     Indication: OESOPHAGEAL CARCINOMA
  2. XELJANZ [Suspect]
     Active Substance: TOFACITINIB CITRATE
     Indication: DERMATOPHYTOSIS
     Dosage: 5 MG, 2X/DAY
     Route: 048
     Dates: start: 20140509, end: 20160707
  3. XELJANZ [Suspect]
     Active Substance: TOFACITINIB CITRATE
     Indication: RHEUMATOID ARTHRITIS
  4. CARVEDILOL. [Concomitant]
     Active Substance: CARVEDILOL
     Dosage: UNK
  5. MULTAQ [Concomitant]
     Active Substance: DRONEDARONE
     Dosage: UNK
  6. XELJANZ [Suspect]
     Active Substance: TOFACITINIB CITRATE
     Indication: POST PROCEDURAL HYPOTHYROIDISM
     Dosage: 5 MG, DAILY
     Route: 048
     Dates: start: 20140509, end: 20160807

REACTIONS (2)
  - Product use issue [Unknown]
  - Neoplasm progression [Not Recovered/Not Resolved]

NARRATIVE: CASE EVENT DATE: 2014
